FAERS Safety Report 10076841 (Version 1)
Quarter: 2014Q2

REPORT INFORMATION
  Report Type: Spontaneous
  Country: GB (occurrence: GB)
  Receive Date: 20140414
  Receipt Date: 20140414
  Transmission Date: 20141212
  Serious: Yes (Other)
  Sender: FDA-Public Use
  Company Number: GB-PFIZER INC-2014101990

PATIENT
  Age: 56 Year
  Sex: Male
  Weight: 85 kg

DRUGS (1)
  1. ATORVASTATIN [Suspect]
     Dosage: UNK
     Route: 048
     Dates: start: 20140317

REACTIONS (1)
  - Blister [Recovering/Resolving]
